FAERS Safety Report 7752151-1 (Version None)
Quarter: 2011Q3

REPORT INFORMATION
  Report Type: 
  Country: None (occurrence: None)
  Receive Date: 20110913
  Receipt Date: 20110906
  Transmission Date: 20111222
  Serious: Yes (Life-Threatening, Hospitalization, Disabling, Other)
  Sender: FDA-Public Use
  Company Number: 2011SP031313

PATIENT
  Age: 35 Year
  Sex: Female
  Weight: 56.246 kg

DRUGS (6)
  1. FLONASE [Concomitant]
  2. NASONEX [Concomitant]
  3. VITAMIN D [Concomitant]
  4. NUVARING [Suspect]
     Indication: CONTRACEPTION
     Dosage: QM; VAG, QM; VAG
     Route: 067
     Dates: start: 20041001, end: 20080501
  5. NUVARING [Suspect]
     Indication: CONTRACEPTION
     Dosage: QM; VAG, QM; VAG
     Route: 067
     Dates: start: 20090601, end: 20110101
  6. PREDNISONE [Concomitant]

REACTIONS (3)
  - CEREBRAL VENOUS THROMBOSIS [None]
  - INTRACRANIAL VENOUS SINUS THROMBOSIS [None]
  - CEREBROVASCULAR ACCIDENT [None]
